FAERS Safety Report 6533696-9 (Version None)
Quarter: 2010Q1

REPORT INFORMATION
  Report Type: 
  Country: None (occurrence: None)
  Receive Date: 20100111
  Receipt Date: 20100107
  Transmission Date: 20100710
  Serious: Yes (Life-Threatening, Hospitalization, Other)
  Sender: FDA-Public Use
  Company Number: JP-B.I. PHARMACEUTICALS,INC./RIDGEFIELD-2009-BP-14541NB

PATIENT
  Sex: Female
  Weight: 55 kg

DRUGS (8)
  1. MOBIC [Suspect]
     Indication: ANALGESIC THERAPY
     Dosage: 10 MG
     Route: 048
     Dates: start: 20061226, end: 20091108
  2. TIGASON / ETRETINATE [Concomitant]
     Indication: PUSTULAR PSORIASIS
     Dosage: 40 MG
     Route: 048
     Dates: start: 20090911
  3. ADALAT CC [Concomitant]
     Indication: ANGINA PECTORIS
     Dosage: 40 MG
     Route: 048
     Dates: start: 20051001
  4. CONIEL [Concomitant]
     Indication: ANGINA PECTORIS
     Dosage: 8 MG
     Route: 048
     Dates: start: 20091108
  5. SIGMART [Concomitant]
     Indication: ANGINA PECTORIS
     Dosage: 45 MG
     Route: 048
     Dates: start: 20051001
  6. LOCHOL [Concomitant]
     Indication: ANGINA PECTORIS
     Dosage: 20 MG
     Route: 048
     Dates: start: 20060810
  7. GASTER D [Concomitant]
     Indication: GASTRIC ULCER
     Dosage: 40 MG
     Route: 048
     Dates: start: 20090721
  8. DEPAKENE [Concomitant]
     Indication: EPILEPSY
     Dosage: 800 MG
     Route: 048
     Dates: start: 20040101

REACTIONS (3)
  - CHEST PAIN [None]
  - ELECTROCARDIOGRAM ST SEGMENT ELEVATION [None]
  - VENTRICULAR FIBRILLATION [None]
